FAERS Safety Report 5694095-5 (Version None)
Quarter: 2008Q2

REPORT INFORMATION
  Report Type: 
  Country: None (occurrence: None)
  Receive Date: 20080402
  Receipt Date: 20080320
  Transmission Date: 20081010
  Serious: Yes (Hospitalization)
  Sender: FDA-Public Use
  Company Number: 025565

PATIENT
  Age: 75 Year
  Sex: Male

DRUGS (3)
  1. LITHIUM CARBONATE [Suspect]
     Indication: BIPOLAR I DISORDER
     Dosage: 450MG, BID
  2. RISPERDAL [Suspect]
     Indication: MANIA
     Dosage: 2 MG, QHS
  3. SEROQUEL [Concomitant]

REACTIONS (10)
  - ASTHENIA [None]
  - BIPOLAR I DISORDER [None]
  - BODY TEMPERATURE INCREASED [None]
  - DRUG INTERACTION [None]
  - ENCEPHALOPATHY [None]
  - LETHARGY [None]
  - MASKED FACIES [None]
  - MUSCLE RIGIDITY [None]
  - REFUSAL OF TREATMENT BY PATIENT [None]
  - TREMOR [None]
